FAERS Safety Report 10262520 (Version 1)
Quarter: 2014Q2

REPORT INFORMATION
  Report Type: Spontaneous
  Country: PT (occurrence: PT)
  Receive Date: 20140626
  Receipt Date: 20140626
  Transmission Date: 20141212
  Serious: Yes (Hospitalization, Disabling, Other)
  Sender: FDA-Public Use
  Company Number: PT-ACTAVIS-2014-13761

PATIENT
  Age: 68 Year
  Sex: Female

DRUGS (20)
  1. ALPRAZOLAM (UNKNOWN) [Suspect]
     Indication: PRODUCT USED FOR UNKNOWN INDICATION
     Dosage: 1 MG, DAILY
     Route: 065
  2. PAROXETINE (UNKNOWN) [Interacting]
     Indication: PRODUCT USED FOR UNKNOWN INDICATION
     Dosage: 90 MG, DAILY
     Route: 065
  3. SIMVASTATIN (UNKNOWN) [Interacting]
     Indication: PRODUCT USED FOR UNKNOWN INDICATION
     Dosage: 40 MG, DAILY
     Route: 065
  4. CHLORDIAZEPOXIDE (UNKNOWN) [Interacting]
     Indication: PRODUCT USED FOR UNKNOWN INDICATION
     Dosage: 5 MG, DAILY
     Route: 065
  5. BETAHISTINE (UNKNOWN) [Suspect]
     Indication: PRODUCT USED FOR UNKNOWN INDICATION
     Dosage: 16 MG, DAILY
     Route: 065
  6. TRAZODONE HYDROCHLORIDE (WATSON LABORATORIES) [Interacting]
     Indication: PRODUCT USED FOR UNKNOWN INDICATION
     Dosage: 150 MG, DAILY
     Route: 065
  7. TRIHEXYPHENIDYL HYDROCHLORIDE (WATSON LABORATORIES) [Interacting]
     Indication: PRODUCT USED FOR UNKNOWN INDICATION
     Dosage: 4 MG, DAILY
     Route: 065
  8. PROPRANOLOL (UNKNOWN) [Suspect]
     Indication: PRODUCT USED FOR UNKNOWN INDICATION
     Dosage: 40 MG, DAILY
     Route: 065
  9. TRIMETAZIDINE (UNKNOWN) [Suspect]
     Indication: PRODUCT USED FOR UNKNOWN INDICATION
     Dosage: 20 MG, DAILY
     Route: 065
  10. CLIDINIUM BROMIDE [Suspect]
     Indication: PRODUCT USED FOR UNKNOWN INDICATION
     Dosage: 2.5 MG, DAILY
     Route: 065
  11. DEFLAZACORT [Suspect]
     Indication: PRODUCT USED FOR UNKNOWN INDICATION
     Dosage: 3 MG, DAILY
     Route: 065
  12. OTILONIUM BROMIDE [Suspect]
     Indication: PRODUCT USED FOR UNKNOWN INDICATION
     Dosage: 40 MG, DAILY
     Route: 065
  13. ALFUZOSIN (UNKNOWN) [Suspect]
     Indication: PRODUCT USED FOR UNKNOWN INDICATION
     Dosage: 5 MG, DAILY
     Route: 065
  14. ACECLOFENAC [Concomitant]
     Indication: PRODUCT USED FOR UNKNOWN INDICATION
     Dosage: 100 MG, DAILY
     Route: 065
  15. ETORICOXIB [Concomitant]
     Indication: PRODUCT USED FOR UNKNOWN INDICATION
     Dosage: 90 MG, DAILY
     Route: 065
  16. CELECOXIB LA SANTE [Concomitant]
     Indication: PRODUCT USED FOR UNKNOWN INDICATION
     Dosage: 200 MG, DAILY
     Route: 065
  17. CITICOLINE NIPRO [Concomitant]
     Indication: PRODUCT USED FOR UNKNOWN INDICATION
     Dosage: 600 MG, DAILY
     Route: 065
  18. GLUCOSAMINE                        /00943602/ [Concomitant]
     Indication: PRODUCT USED FOR UNKNOWN INDICATION
     Dosage: 1500 MG, DAILY
     Route: 065
  19. OMEPRAZOLE                         /00661202/ [Concomitant]
     Indication: PRODUCT USED FOR UNKNOWN INDICATION
     Dosage: 20 MG, DAILY
     Route: 065
  20. PARACETAMOL [Concomitant]
     Indication: PRODUCT USED FOR UNKNOWN INDICATION
     Dosage: UNK
     Route: 065

REACTIONS (8)
  - Dementia [Recovered/Resolved]
  - Gait disturbance [Recovered/Resolved]
  - Hyperreflexia [Recovered/Resolved]
  - Myoclonus [Recovered/Resolved]
  - Drug interaction [Recovered/Resolved]
  - Overdose [Recovered/Resolved]
  - Impaired work ability [None]
  - Activities of daily living impaired [None]
